FAERS Safety Report 17860331 (Version 1)
Quarter: 2020Q2

REPORT INFORMATION
  Report Type: Spontaneous
  Country: US (occurrence: US)
  Receive Date: 20200604
  Receipt Date: 20200604
  Transmission Date: 20200714
  Serious: No
  Sender: FDA-Public Use
  Company Number: None

PATIENT
  Age: 67 Year
  Sex: Male
  Weight: 69.44 kg

DRUGS (8)
  1. GLIMERPIRIDE [Concomitant]
     Active Substance: GLIMEPIRIDE
  2. LISINOPRIL. [Concomitant]
     Active Substance: LISINOPRIL
  3. CAPECITABINE. [Suspect]
     Active Substance: CAPECITABINE
     Indication: COLON CANCER
     Route: 048
     Dates: start: 20200306, end: 20200604
  4. ASPIRIN. [Concomitant]
     Active Substance: ASPIRIN
  5. LIPITOR [Concomitant]
     Active Substance: ATORVASTATIN CALCIUM
  6. PROCHLORPERAZINE. [Concomitant]
     Active Substance: PROCHLORPERAZINE
  7. ZOLOFT [Concomitant]
     Active Substance: SERTRALINE HYDROCHLORIDE
  8. TAMSULOSIN [Concomitant]
     Active Substance: TAMSULOSIN

REACTIONS (4)
  - Aspartate aminotransferase increased [None]
  - Liver function test increased [None]
  - Blood bilirubin increased [None]
  - Mononeuropathy [None]

NARRATIVE: CASE EVENT DATE: 20200604
